FAERS Safety Report 8639337 (Version 7)
Quarter: 2013Q1

REPORT INFORMATION
  Report Type: Spontaneous
  Country: US (occurrence: US)
  Receive Date: 20120627
  Receipt Date: 20130118
  Transmission Date: 20140127
  Serious: Yes (Other)
  Sender: FDA-Public Use
  Company Number: US-PFIZER INC-2012151047

PATIENT
  Age: 96 Year
  Sex: Male

DRUGS (12)
  1. FLECTOR [Suspect]
     Indication: ARTHRALGIA
     Dosage: UNK
     Route: 062
     Dates: start: 20120619
  2. FLECTOR [Suspect]
     Indication: SWELLING
     Dosage: UNK
  3. FLECTOR [Suspect]
     Indication: PAIN IN EXTREMITY
  4. NAPROXEN [Suspect]
     Dosage: 500 ML, 2X/DAY
     Dates: start: 20120618
  5. NAPROXEN [Suspect]
     Dosage: 500 MG, UNK
  6. DIOVAN HCT [Concomitant]
     Dosage: 12.5MG/ 80MG, 1X/DAY
  7. LIPITOR [Concomitant]
     Dosage: 10 MG, 1 TAB EVERY OTHER DAY
  8. PLAVIX [Concomitant]
     Dosage: 75 MG, 1X/DAY
     Route: 048
  9. LEVOTHYROXINE [Concomitant]
     Dosage: 0.1 MG, 1X/DAY
  10. ZEGERID [Concomitant]
     Dosage: 40MG/1100MG, 1XDAY
     Route: 048
  11. HYDROXYUREA [Concomitant]
     Dosage: 500 MG, 1X/DAY
     Route: 048
  12. XANAX [Concomitant]
     Dosage: 0.25 MG, AS NEEDED
     Route: 048

REACTIONS (8)
  - Diarrhoea haemorrhagic [Unknown]
  - Drug ineffective [Unknown]
  - Abdominal discomfort [Unknown]
  - Condition aggravated [Unknown]
  - Diarrhoea [Unknown]
  - Abdominal pain upper [Not Recovered/Not Resolved]
  - Laceration [Unknown]
  - Gout [Unknown]
